FAERS Safety Report 6101463-6 (Version None)
Quarter: 2009Q1

REPORT INFORMATION
  Report Type: 
  Country: None (occurrence: None)
  Receive Date: 20090227
  Receipt Date: 20081030
  Transmission Date: 20090719
  Serious: Yes (Other)
  Sender: FDA-Public Use
  Company Number: 2008S1019685

PATIENT
  Age: 15 Year
  Sex: Male

DRUGS (1)
  1. AMNESTEEM [Suspect]
     Indication: ACNE
     Dosage: 60 MG
     Dates: start: 20080930, end: 20081029

REACTIONS (2)
  - EPISTAXIS [None]
  - PLATELET COUNT DECREASED [None]
